FAERS Safety Report 7794350-9 (Version None)
Quarter: 2011Q4

REPORT INFORMATION
  Report Type: 
  Country: None (occurrence: None)
  Receive Date: 20111004
  Receipt Date: 20110928
  Transmission Date: 20120403
  Serious: Yes (Other)
  Sender: FDA-Public Use
  Company Number: JP-PFIZER INC-2011131550

PATIENT
  Age: 26 Year
  Sex: Female

DRUGS (1)
  1. LYRICA [Suspect]
     Indication: PAIN
     Dosage: 450 MG, A DAY
     Route: 048
     Dates: start: 20110216, end: 20110615

REACTIONS (3)
  - BLOOD PROLACTIN INCREASED [None]
  - BREAST DISCHARGE [None]
  - MENSTRUATION DELAYED [None]
